FAERS Safety Report 18150145 (Version 1)
Quarter: 2020Q3

REPORT INFORMATION
  Report Type: Spontaneous
  Country: CN (occurrence: CN)
  Receive Date: 20200814
  Receipt Date: 20200814
  Transmission Date: 20201103
  Serious: Yes (Other)
  Sender: FDA-Public Use
  Company Number: ALC2020CN006467

PATIENT
  Sex: Female

DRUGS (1)
  1. FLUORESCITE [Suspect]
     Active Substance: FLUORESCEIN SODIUM
     Indication: RHEUMATOID ARTHRITIS
     Dosage: 5ML, QD
     Route: 042
     Dates: start: 20200730, end: 20200730

REACTIONS (2)
  - Face oedema [Recovered/Resolved]
  - Rash [Recovered/Resolved]
